FAERS Safety Report 6301701-0 (Version None)
Quarter: 2009Q3

REPORT INFORMATION
  Report Type: 
  Country: None (occurrence: None)
  Receive Date: 20090807
  Receipt Date: 20090730
  Transmission Date: 20100115
  Serious: Yes (Hospitalization)
  Sender: FDA-Public Use
  Company Number: US-ABBOTT-09P-163-0588254-00

PATIENT
  Sex: Male
  Weight: 86.714 kg

DRUGS (18)
  1. NIASPAN [Suspect]
     Indication: HIGH DENSITY LIPOPROTEIN DECREASED
     Dates: start: 20090720, end: 20090729
  2. CARVEDILOL [Concomitant]
     Indication: DRUG USE FOR UNKNOWN INDICATION
  3. FLUOXETINE [Concomitant]
     Indication: DRUG USE FOR UNKNOWN INDICATION
  4. LEVOTHYROXINE [Concomitant]
     Indication: DRUG USE FOR UNKNOWN INDICATION
  5. ENALAPRIL MALEATE [Concomitant]
     Indication: DRUG USE FOR UNKNOWN INDICATION
  6. PLAVIX [Concomitant]
     Indication: DRUG USE FOR UNKNOWN INDICATION
  7. MAGNESIUM OXIDE [Concomitant]
     Indication: DRUG USE FOR UNKNOWN INDICATION
  8. PACERONE [Concomitant]
     Indication: DRUG USE FOR UNKNOWN INDICATION
  9. SPIRONOLACTONE [Concomitant]
     Indication: DRUG USE FOR UNKNOWN INDICATION
  10. FUROSEMIDE [Concomitant]
     Indication: DRUG USE FOR UNKNOWN INDICATION
  11. IRON SUPPLEMENT [Concomitant]
     Indication: DRUG USE FOR UNKNOWN INDICATION
  12. MULTI-VITAMIN [Concomitant]
     Indication: DRUG USE FOR UNKNOWN INDICATION
  13. COMBIVENT [Concomitant]
     Indication: DRUG USE FOR UNKNOWN INDICATION
  14. BENADRYL [Concomitant]
     Indication: DRUG USE FOR UNKNOWN INDICATION
  15. NITROGLYCERIN [Concomitant]
     Indication: DRUG USE FOR UNKNOWN INDICATION
  16. CRESTOR [Concomitant]
     Indication: DRUG USE FOR UNKNOWN INDICATION
  17. ASPIRIN [Concomitant]
     Indication: DRUG USE FOR UNKNOWN INDICATION
  18. DIGOXIN [Concomitant]
     Indication: DRUG USE FOR UNKNOWN INDICATION

REACTIONS (5)
  - CHEST DISCOMFORT [None]
  - COLD SWEAT [None]
  - DYSPNOEA [None]
  - HEART RATE DECREASED [None]
  - HYPOTENSION [None]
